FAERS Safety Report 5106521-0 (Version None)
Quarter: 2006Q3

REPORT INFORMATION
  Report Type: 
  Country: None (occurrence: None)
  Receive Date: 20060731
  Receipt Date: 20060428
  Transmission Date: 20061208
  Serious: Yes (Hospitalization, Disabling, Other)
  Sender: FDA-Public Use
  Company Number: US-JNJFOC-20060200523

PATIENT
  Age: 47 Year
  Sex: Male

DRUGS (2)
  1. RISPERDAL [Suspect]
     Indication: DELUSIONAL DISORDER, UNSPECIFIED TYPE
     Dosage: 4 MG, 1 IN 1 DAY , ORAL
     Route: 048
     Dates: start: 20050701, end: 20051218
  2. CONCERTA (UNSPECIFIED) METHYLPHENIDATE HYDROCHLORIDE [Concomitant]

REACTIONS (2)
  - ERECTILE DYSFUNCTION [None]
  - PRIAPISM [None]
